FAERS Safety Report 4439965-0 (Version None)
Quarter: 2004Q3

REPORT INFORMATION
  Report Type: 
  Country: None (occurrence: None)
  Receive Date: 20040902
  Receipt Date: 20040810
  Transmission Date: 20050211
  Serious: Yes (Other)
  Sender: FDA-Public Use
  Company Number: IT-JNJFOC-20040802876

PATIENT
  Age: 21 Year
  Sex: Female
  Weight: 48 kg

DRUGS (3)
  1. LEVOFLOXACIN [Suspect]
     Indication: TONSILLITIS
  2. PARACETAMOL [Concomitant]
     Indication: TONSILLAR HYPERTROPHY
  3. PARACETAMOL [Concomitant]

REACTIONS (8)
  - ALLERGY TEST POSITIVE [None]
  - DYSGEUSIA [None]
  - DYSPNOEA [None]
  - MULTIPLE ALLERGIES [None]
  - OPTIC NEUROPATHY [None]
  - RESPIRATORY RATE INCREASED [None]
  - TRANSAMINASES INCREASED [None]
  - VISION BLURRED [None]
